FAERS Safety Report 7251502-4 (Version None)
Quarter: 2011Q1

REPORT INFORMATION
  Report Type: 
  Country: None (occurrence: None)
  Receive Date: 20110128
  Receipt Date: 20110125
  Transmission Date: 20110831
  Serious: Yes (Death, Hospitalization, Other)
  Sender: FDA-Public Use
  Company Number: US-AMGEN-QUU433929

PATIENT
  Age: 59 Year
  Sex: Male

DRUGS (8)
  1. IMMUNOGLOBULINS [Concomitant]
     Indication: IDIOPATHIC THROMBOCYTOPENIC PURPURA
     Dosage: UNK UNK, UNK
     Route: 042
  2. PLATELETS [Concomitant]
     Indication: IDIOPATHIC THROMBOCYTOPENIC PURPURA
  3. CAMPATH [Concomitant]
     Indication: PRODUCT USED FOR UNKNOWN INDICATION
     Dosage: 30 MG, 3 TIMES/WK
     Route: 058
     Dates: start: 20100804
  4. NPLATE [Suspect]
     Indication: IDIOPATHIC THROMBOCYTOPENIC PURPURA
     Dosage: 8 A?G/KG, UNK
     Dates: start: 20100609, end: 20100729
  5. CORTICOSTEROID NOS [Concomitant]
     Indication: IDIOPATHIC THROMBOCYTOPENIC PURPURA
  6. NPLATE [Suspect]
     Dosage: 8 A?G/KG, UNK
     Dates: start: 20100729
  7. HYDROCODONE BITARTRATE + IBUPROFEN [Concomitant]
     Indication: PAIN
  8. DEXAMETHASONE [Concomitant]
     Indication: IDIOPATHIC THROMBOCYTOPENIC PURPURA
     Dosage: UNK UNK, UNK
     Dates: start: 20090716

REACTIONS (20)
  - MALAISE [None]
  - FATIGUE [None]
  - ECCHYMOSIS [None]
  - DEATH [None]
  - DEHYDRATION [None]
  - STEROID THERAPY [None]
  - PLATELET COUNT ABNORMAL [None]
  - PAIN [None]
  - ABDOMINAL PAIN [None]
  - NIGHT SWEATS [None]
  - CELLULITIS [None]
  - ABSCESS LIMB [None]
  - TRANSAMINASES INCREASED [None]
  - DRUG INEFFECTIVE [None]
  - DIARRHOEA [None]
  - OEDEMA PERIPHERAL [None]
  - HEADACHE [None]
  - NEOPLASM MALIGNANT [None]
  - INCREASED TENDENCY TO BRUISE [None]
  - VENOUS INSUFFICIENCY [None]
